FAERS Safety Report 6219375-6 (Version None)
Quarter: 2009Q2

REPORT INFORMATION
  Report Type: 
  Country: None (occurrence: None)
  Receive Date: 20090609
  Receipt Date: 20090603
  Transmission Date: 20091009
  Serious: Yes (Other)
  Sender: FDA-Public Use
  Company Number: US-ROCHE-632724

PATIENT
  Sex: Female

DRUGS (1)
  1. BONIVA [Suspect]
     Indication: OSTEOPOROSIS
     Dosage: START DATE: YEARS AGO, FREQUENCY: MONTH.
     Route: 048

REACTIONS (3)
  - DYSPHAGIA [None]
  - IMPLANT SITE INFECTION [None]
  - STOMATITIS [None]
